FAERS Safety Report 20859992 (Version 1)
Quarter: 2022Q2

REPORT INFORMATION
  Report Type: Report from Study
  Country: ES (occurrence: ES)
  Receive Date: 20220523
  Receipt Date: 20220523
  Transmission Date: 20220720
  Serious: Yes (Hospitalization, Other)
  Sender: FDA-Public Use
  Company Number: ES-FERRINGPH-2022FE02176

PATIENT
  Age: 39 Year
  Sex: Male

DRUGS (3)
  1. MESALAMINE [Suspect]
     Active Substance: MESALAMINE
     Indication: Colitis ulcerative
     Dosage: 2 GRAM, QD
     Route: 048
     Dates: start: 202203, end: 2022
  2. MESALAMINE [Suspect]
     Active Substance: MESALAMINE
     Dosage: 2 GRAM, QD
     Route: 065
     Dates: start: 2016, end: 2021
  3. MESALAMINE [Suspect]
     Active Substance: MESALAMINE
     Dosage: 1 GRAM
     Route: 061
     Dates: start: 202203, end: 2022

REACTIONS (2)
  - Pericarditis [Recovered/Resolved]
  - Colitis ulcerative [Recovered/Resolved]

NARRATIVE: CASE EVENT DATE: 20210801
